FAERS Safety Report 6891410-1 (Version None)
Quarter: 2010Q3

REPORT INFORMATION
  Report Type: 
  Country: None (occurrence: None)
  Receive Date: 20100731
  Receipt Date: 20070709
  Transmission Date: 20110219
  Serious: No
  Sender: FDA-Public Use
  Company Number: US-PFIZER INC-2007056372

PATIENT
  Sex: Female

DRUGS (7)
  1. AMLODIPINE [Suspect]
     Indication: HYPERTENSION
     Route: 048
     Dates: start: 20070604, end: 20070101
  2. NORVASC [Suspect]
     Indication: HYPERTENSION
     Route: 048
  3. VALSARTAN [Concomitant]
     Route: 048
  4. TORSEMIDE [Concomitant]
     Route: 048
  5. ALL OTHER THERAPEUTIC PRODUCTS [Concomitant]
     Route: 048
  6. CELEBREX [Concomitant]
     Route: 048
  7. TAMOXIFEN CITRATE [Concomitant]
     Route: 048

REACTIONS (2)
  - FEELING ABNORMAL [None]
  - HYPOAESTHESIA ORAL [None]
